FAERS Safety Report 13452776 (Version 1)
Quarter: 2017Q2

REPORT INFORMATION
  Report Type: Spontaneous
  Country: GB (occurrence: GB)
  Receive Date: 20170418
  Receipt Date: 20170418
  Transmission Date: 20170830
  Serious: No
  Sender: FDA-Public Use
  Company Number: GB-ASCEND THERAPEUTICS-1065477

PATIENT
  Age: 53 Year
  Sex: Female

DRUGS (1)
  1. ESTROGEL [Suspect]
     Active Substance: ESTRADIOL
     Indication: MENOPAUSAL SYMPTOMS
     Dates: start: 20120101

REACTIONS (3)
  - Disease recurrence [None]
  - Menopausal symptoms [Not Recovered/Not Resolved]
  - Therapy change [None]

NARRATIVE: CASE EVENT DATE: 20161201
